FAERS Safety Report 23627724 (Version 1)
Quarter: 2024Q1

REPORT INFORMATION
  Report Type: Spontaneous
  Country: NL (occurrence: NL)
  Receive Date: 20240313
  Receipt Date: 20240313
  Transmission Date: 20240409
  Serious: Yes (Other)
  Sender: FDA-Public Use
  Company Number: None

PATIENT
  Age: 67 Year
  Sex: Male
  Weight: 88 kg

DRUGS (8)
  1. CARBOPLATIN [Suspect]
     Active Substance: CARBOPLATIN
     Indication: Small cell lung cancer metastatic
     Dosage: ONLY ON DAY 1, INFUSION OVER 60 MINUTES, CARBOPLATINE INFOPL CONC  BRAND NAME NOT SPECIFIED
     Route: 065
     Dates: start: 20231127
  2. NIFEDIPINE [Concomitant]
     Active Substance: NIFEDIPINE
     Indication: Product used for unknown indication
     Dosage: MGA / BRAND NAME NOT SPECIFIED
     Route: 065
  3. ROSUVASTATIN [Concomitant]
     Active Substance: ROSUVASTATIN
     Indication: Product used for unknown indication
     Dosage: BRAND NAME NOT SPECIFIED
     Route: 065
  4. DEXAMETHASONE [Concomitant]
     Active Substance: DEXAMETHASONE
     Indication: Product used for unknown indication
     Dosage: BRAND NAME NOT SPECIFIED
     Route: 065
  5. METOPROLOL [Concomitant]
     Active Substance: METOPROLOL
     Indication: Product used for unknown indication
     Dosage: BRAND NAME NOT SPECIFIED
     Route: 065
  6. LORMETAZEPAM [Concomitant]
     Active Substance: LORMETAZEPAM
     Indication: Product used for unknown indication
     Dosage: BRAND NAME NOT SPECIFIED
     Route: 065
  7. HYDROCHLOROTHIAZIDE\LOSARTAN [Concomitant]
     Active Substance: HYDROCHLOROTHIAZIDE\LOSARTAN
     Indication: Product used for unknown indication
     Dosage: 50/12.5 MG (MILLIGRAM), BRAND NAME NOT SPECIFIED
     Route: 065
  8. ETOPOSIDE [Suspect]
     Active Substance: ETOPOSIDE
     Indication: Small cell lung cancer metastatic
     Dosage: 4 COURSES, EVERY 3 WEEKS, DAY 1, 2, AND 3, INFUSION 120M,  BRAND NAME NOT SPECIFIED
     Route: 065
     Dates: start: 20231127

REACTIONS (3)
  - Pancytopenia [Unknown]
  - Deafness [Recovering/Resolving]
  - Tinnitus [Recovering/Resolving]
